FAERS Safety Report 7519744-8 (Version None)
Quarter: 2011Q2

REPORT INFORMATION
  Report Type: 
  Country: None (occurrence: None)
  Receive Date: 20110602
  Receipt Date: 20110526
  Transmission Date: 20111010
  Serious: Yes (Other)
  Sender: FDA-Public Use
  Company Number: US-PURDUE-USA-2010-0048118

PATIENT
  Age: 51 Year
  Sex: Female

DRUGS (1)
  1. OXYCONTIN [Suspect]
     Indication: PAIN
     Dosage: 10 MG, BID
     Dates: start: 20100901

REACTIONS (22)
  - THROAT CANCER [None]
  - HEPATIC ENZYME ABNORMAL [None]
  - ALOPECIA [None]
  - NAUSEA [None]
  - WEIGHT DECREASED [None]
  - SWOLLEN TONGUE [None]
  - GENERAL PHYSICAL HEALTH DETERIORATION [None]
  - ABNORMAL FAECES [None]
  - NEGATIVE THOUGHTS [None]
  - DRUG EFFECT DECREASED [None]
  - CONSTIPATION [None]
  - MUSCLE SPASMS [None]
  - VISION BLURRED [None]
  - DRUG EFFECT DELAYED [None]
  - FAECES DISCOLOURED [None]
  - HEADACHE [None]
  - VOMITING [None]
  - DIARRHOEA [None]
  - ABDOMINAL PAIN UPPER [None]
  - CHROMATURIA [None]
  - TONGUE DISORDER [None]
  - PAIN [None]
